FAERS Safety Report 5972598-3 (Version None)
Quarter: 2008Q4

REPORT INFORMATION
  Report Type: 
  Country: None (occurrence: None)
  Receive Date: 20081126
  Receipt Date: 20081126
  Transmission Date: 20090506
  Serious: Yes (Other)
  Sender: FDA-Public Use
  Company Number: None

PATIENT
  Age: 66 Year
  Sex: Male
  Weight: 102.0593 kg

DRUGS (1)
  1. ISOSORBIDE MONONITRATE [Suspect]
     Indication: POSTOPERATIVE CARE
     Dosage: 60MGS  1 PILL DAILY PO
     Route: 048
     Dates: start: 20081005, end: 20081122

REACTIONS (7)
  - DECREASED APPETITE [None]
  - DIARRHOEA [None]
  - DIZZINESS [None]
  - DRUG DISPENSING ERROR [None]
  - HEADACHE [None]
  - INCORRECT DOSE ADMINISTERED [None]
  - VERTIGO [None]
